FAERS Safety Report 6094240-6 (Version None)
Quarter: 2009Q1

REPORT INFORMATION
  Report Type: 
  Country: None (occurrence: None)
  Receive Date: 20090223
  Receipt Date: 20090218
  Transmission Date: 20090719
  Serious: Yes (Life-Threatening, Other)
  Sender: FDA-Public Use
  Company Number: FABR-1000565

PATIENT
  Age: 39 Year
  Sex: Male
  Weight: 59 kg

DRUGS (6)
  1. FABRAZYME [Suspect]
     Indication: FABRY'S DISEASE
     Dosage: 1 MG/KG, Q2W, INTRAVENOUS
     Route: 042
     Dates: start: 20080901, end: 20081208
  2. IRBESARTAN [Concomitant]
  3. TRANDOLAPRIL [Concomitant]
  4. ATARAX [Concomitant]
  5. PARACETAMOL (PARACETAMOL) [Concomitant]
  6. PREDNISONE [Concomitant]

REACTIONS (18)
  - ANGIOEDEMA [None]
  - ANTIBODY TEST POSITIVE [None]
  - BLISTER [None]
  - BLOOD PRESSURE INCREASED [None]
  - BRONCHOSPASM [None]
  - CEREBROVASCULAR ACCIDENT [None]
  - COMPLEMENT FACTOR INCREASED [None]
  - CONDITION AGGRAVATED [None]
  - COUGH [None]
  - INFUSION RELATED REACTION [None]
  - OROPHARYNGEAL DISCOMFORT [None]
  - OXYGEN SATURATION DECREASED [None]
  - PARAESTHESIA [None]
  - RENAL FAILURE [None]
  - RESPIRATORY DISORDER [None]
  - THERAPEUTIC RESPONSE UNEXPECTED [None]
  - TRYPTASE INCREASED [None]
  - WHEEZING [None]
